FAERS Safety Report 15814810 (Version 1)
Quarter: 2019Q1

REPORT INFORMATION
  Report Type: Spontaneous
  Country: US (occurrence: US)
  Receive Date: 20190111
  Receipt Date: 20190111
  Transmission Date: 20190417
  Serious: Yes (Death)
  Sender: FDA-Public Use
  Company Number: US-INSYS THERAPEUTICS, INC-INS201901-000012

PATIENT
  Age: 53 Year
  Sex: Female

DRUGS (9)
  1. COCAINE [Suspect]
     Active Substance: COCAINE
  2. HYDROXYZINE [Suspect]
     Active Substance: HYDROXYZINE HYDROCHLORIDE
  3. BENZOYLECGONINE [Suspect]
     Active Substance: BENZOYLECGONINE
  4. MORPHINE [Suspect]
     Active Substance: MORPHINE
  5. CYCLOPROPYLFENTANYL [Suspect]
     Active Substance: CYCLOPROPYLFENTANYL
  6. MIRTAZAPINE. [Suspect]
     Active Substance: MIRTAZAPINE
  7. CHLORPHENIRAMINE. [Suspect]
     Active Substance: CHLORPHENIRAMINE
  8. ETHYL ALCOHOL [Suspect]
     Active Substance: ALCOHOL
  9. FENTANYL. [Suspect]
     Active Substance: FENTANYL
     Indication: PRODUCT USED FOR UNKNOWN INDICATION

REACTIONS (1)
  - Death [Fatal]

NARRATIVE: CASE EVENT DATE: 2017
